FAERS Safety Report 20039195 (Version 3)
Quarter: 2022Q1

REPORT INFORMATION
  Report Type: Spontaneous
  Country: GB (occurrence: GB)
  Receive Date: 20211105
  Receipt Date: 20220228
  Transmission Date: 20220424
  Serious: Yes (Hospitalization, Other)
  Sender: FDA-Public Use
  Company Number: GB-SA-2021SA224589

PATIENT
  Age: 68 Year
  Sex: Female
  Weight: 92 kg

DRUGS (47)
  1. OMEPRAZOLE [Suspect]
     Active Substance: OMEPRAZOLE
     Indication: Abdominal discomfort
     Dosage: 20 MILLIGRAM, QD
     Route: 065
     Dates: start: 20100917
  2. OMEPRAZOLE [Suspect]
     Active Substance: OMEPRAZOLE
     Indication: Duodenal ulcer
     Dosage: 20 MG, BID 40 MG, QD 2X/DAY
     Dates: start: 20100917
  3. OMEPRAZOLE [Suspect]
     Active Substance: OMEPRAZOLE
     Dosage: 40 MG, QD 20 MG, 2X/DAY FOR STOMACH
     Dates: start: 20200917
  4. IRBESARTAN [Suspect]
     Active Substance: IRBESARTAN
     Indication: Product used for unknown indication
     Dates: start: 20100912
  5. IRBESARTAN [Suspect]
     Active Substance: IRBESARTAN
     Route: 065
     Dates: start: 20100917
  6. CARBAMAZEPINE [Suspect]
     Active Substance: CARBAMAZEPINE
     Indication: Product used for unknown indication
  7. CARBOCYSTEINE [Suspect]
     Active Substance: CARBOCYSTEINE
     Indication: Rheumatoid arthritis
     Route: 065
     Dates: start: 20100917
  8. CIPROFLOXACIN HYDROCHLORIDE [Suspect]
     Active Substance: CIPROFLOXACIN HYDROCHLORIDE
     Indication: Depression
     Dosage: 1000 MILLIGRAM
     Route: 065
     Dates: start: 20100917
  9. CIPROFLOXACIN HYDROCHLORIDE [Suspect]
     Active Substance: CIPROFLOXACIN HYDROCHLORIDE
     Dosage: 1000 MILLIGRAM
     Dates: start: 20200917
  10. ENBREL [Suspect]
     Active Substance: ETANERCEPT
     Indication: Rheumatoid arthritis
     Dosage: 50 MILLIGRAM, Q.W., WEEKLY, SOLUTION FOR INJECTION IN PRE-FILLED PEN, MYCLIC PENS
     Route: 058
     Dates: start: 20100917
  11. GUANIDINE [Suspect]
     Active Substance: GUANIDINE
     Indication: Abdominal discomfort
  12. GUANIDINE [Suspect]
     Active Substance: GUANIDINE
     Dosage: 750 MG;;
  13. METHOTREXATE [Suspect]
     Active Substance: METHOTREXATE
     Indication: Rheumatoid arthritis
     Route: 065
     Dates: start: 20100917
  14. METHOTREXATE [Suspect]
     Active Substance: METHOTREXATE
     Dosage: UNK;
     Route: 065
  15. PHYLLOCONTIN [Suspect]
     Active Substance: AMINOPHYLLINE
     Indication: Product used for unknown indication
     Route: 065
     Dates: start: 20100917
  16. ZINC [Suspect]
     Active Substance: ZINC
     Indication: Depression
  17. ZINC [Suspect]
     Active Substance: ZINC
     Dosage: UNK; ;
  18. BENDROFLUMETHIAZIDE [Concomitant]
     Active Substance: BENDROFLUMETHIAZIDE
     Indication: Depression
     Route: 065
  19. BENDROFLUMETHIAZIDE [Concomitant]
     Active Substance: BENDROFLUMETHIAZIDE
     Dosage: UNK; ;
     Route: 065
  20. BENDROFLUMETHIAZIDE [Concomitant]
     Active Substance: BENDROFLUMETHIAZIDE
     Dosage: UNK; ;
     Route: 065
  21. CABERGOLINE [Concomitant]
     Active Substance: CABERGOLINE
     Indication: Empty sella syndrome
     Dosage: UNK; ;
     Route: 065
  22. CABERGOLINE [Concomitant]
     Active Substance: CABERGOLINE
     Dosage: UNK; ;
     Route: 065
  23. CETIRIZINE [Concomitant]
     Active Substance: CETIRIZINE HYDROCHLORIDE
     Indication: Abdominal discomfort
     Dosage: UNK; ;
     Route: 065
  24. CETIRIZINE [Concomitant]
     Active Substance: CETIRIZINE HYDROCHLORIDE
     Dosage: UNK; ;
     Route: 065
  25. CHARCOAL ACTIVATED [Concomitant]
     Active Substance: ACTIVATED CHARCOAL
     Indication: Product used for unknown indication
  26. EZETIMIBE [Concomitant]
     Active Substance: EZETIMIBE
     Indication: Product used for unknown indication
     Dosage: UNK; ;
     Route: 065
  27. FOLIC ACID [Concomitant]
     Active Substance: FOLIC ACID
     Indication: Product used for unknown indication
     Dosage: UNK; ;
     Route: 065
  28. FOLIC ACID [Concomitant]
     Active Substance: FOLIC ACID
     Dosage: UNK; ;; ;
     Route: 065
  29. LEVOTHYROXINE [Concomitant]
     Active Substance: LEVOTHYROXINE
     Indication: Abdominal discomfort
     Dosage: UNK; ;
     Route: 065
  30. LEVOTHYROXINE [Concomitant]
     Active Substance: LEVOTHYROXINE
     Dosage: UNK; ;
     Route: 016
  31. ORUVAIL [Concomitant]
     Active Substance: KETOPROFEN
     Indication: Empty sella syndrome
     Dosage: UNK; ;
     Route: 065
  32. ORUVAIL [Concomitant]
     Active Substance: KETOPROFEN
     Dosage: UNK; ;
     Route: 065
  33. ORUVAIL [Concomitant]
     Active Substance: KETOPROFEN
     Dosage: UNK; ;
     Route: 065
  34. ORUVAIL [Concomitant]
     Active Substance: KETOPROFEN
     Dosage: UNK; ;
     Route: 065
  35. ORUVAIL [Concomitant]
     Active Substance: KETOPROFEN
     Dosage: UNK; ;
     Route: 065
  36. ORUVAIL [Concomitant]
     Active Substance: KETOPROFEN
     Route: 065
  37. ORUVAIL [Concomitant]
     Active Substance: KETOPROFEN
     Dosage: UNK; ;
     Route: 065
  38. AMINOPHYLLINE [Suspect]
     Active Substance: AMINOPHYLLINE
     Dosage: 400 MILLIGRAM, QD
  39. SULFAGUANIDINE [Suspect]
     Active Substance: SULFAGUANIDINE
  40. VENLAFAXINE HYDROCHLORIDE [Suspect]
     Active Substance: VENLAFAXINE HYDROCHLORIDE
     Dosage: 225 MILLIGRAM
  41. VENLAFAXINE HYDROCHLORIDE [Suspect]
     Active Substance: VENLAFAXINE HYDROCHLORIDE
     Dosage: 225 MG, QD, (PROLONGED RELEASE)
  42. THEOPHYLLINE [Suspect]
     Active Substance: THEOPHYLLINE
     Dosage: 750 MILLIGRAM
  43. CIPROFLOXACIN [Suspect]
     Active Substance: CIPROFLOXACIN
  44. METHOTREXATE SODIUM [Suspect]
     Active Substance: METHOTREXATE SODIUM
  45. CIPROFLOXACIN [Suspect]
     Active Substance: CIPROFLOXACIN
  46. DITIOCARB ZINC [Suspect]
     Active Substance: DITIOCARB ZINC
  47. CHARCOAL ACTIVATED [Suspect]
     Active Substance: ACTIVATED CHARCOAL

REACTIONS (11)
  - Lower respiratory tract infection [Not Recovered/Not Resolved]
  - Pulmonary pain [Unknown]
  - Arthropathy [Unknown]
  - Knee arthroplasty [Unknown]
  - Product dose omission issue [Unknown]
  - Overdose [Unknown]
  - Off label use [Unknown]
  - Drug abuse [Unknown]
  - Abdominal discomfort [Unknown]
  - Rash [Not Recovered/Not Resolved]
  - Intentional product misuse [Unknown]

NARRATIVE: CASE EVENT DATE: 20201001
